FAERS Safety Report 4729787-5 (Version None)
Quarter: 2005Q3

REPORT INFORMATION
  Report Type: 
  Country: None (occurrence: None)
  Receive Date: 20050801
  Receipt Date: 20050719
  Transmission Date: 20060218
  Serious: Yes (Hospitalization)
  Sender: FDA-Public Use
  Company Number: NO-MERCK-0507NOR00015

PATIENT
  Age: 78 Year
  Sex: Female

DRUGS (2)
  1. VIOXX [Suspect]
     Indication: OSTEOARTHRITIS
     Route: 048
     Dates: start: 20010924, end: 20040921
  2. VIOXX [Suspect]
     Route: 048
     Dates: start: 20040922, end: 20040930

REACTIONS (1)
  - CEREBRAL INFARCTION [None]
